FAERS Safety Report 5472578-0 (Version None)
Quarter: 2007Q4

REPORT INFORMATION
  Report Type: 
  Country: None (occurrence: None)
  Receive Date: 20071001
  Receipt Date: 20070320
  Transmission Date: 20080405
  Serious: No
  Sender: FDA-Public Use
  Company Number: US-ASTRAZENECA-2006UW10307

PATIENT
  Age: 65 Year
  Sex: Female
  Weight: 49.9 kg

DRUGS (3)
  1. ARIMIDEX [Suspect]
     Indication: BREAST CANCER
     Route: 048
     Dates: start: 20060523
  2. OSTEOBIFLEX [Concomitant]
  3. LEVOXYL [Concomitant]

REACTIONS (9)
  - ABDOMINAL PAIN [None]
  - ARTHRALGIA [None]
  - DIZZINESS [None]
  - DYSGEUSIA [None]
  - DYSPEPSIA [None]
  - HEADACHE [None]
  - HOT FLUSH [None]
  - HYPERTENSION [None]
  - INCISION SITE PAIN [None]
